FAERS Safety Report 17898308 (Version 1)
Quarter: 2020Q2

REPORT INFORMATION
  Report Type: Report from Study
  Country: FR (occurrence: FR)
  Receive Date: 20200616
  Receipt Date: 20200616
  Transmission Date: 20200714
  Serious: Yes (Other)
  Sender: FDA-Public Use
  Company Number: FR-ORION CORPORATION ORION PHARMA-19_00005267

PATIENT
  Age: 42 Year
  Sex: Female
  Weight: 105 kg

DRUGS (13)
  1. METHOTREXATE (TRADE NAME UNKNOWN) [Suspect]
     Active Substance: METHOTREXATE
     Route: 048
     Dates: start: 20170721, end: 20180401
  2. TRINORDIOL [Concomitant]
     Active Substance: ETHINYL ESTRADIOL\LEVONORGESTREL
     Route: 065
  3. ACIDE FOLIQUE [Concomitant]
     Active Substance: FOLIC ACID
     Route: 048
     Dates: start: 201303, end: 20180401
  4. METHOTREXATE (TRADE NAME UNKNOWN) [Suspect]
     Active Substance: METHOTREXATE
     Route: 048
     Dates: start: 201303, end: 20140408
  5. MIRENA [Concomitant]
     Active Substance: LEVONORGESTREL
     Indication: CONTRACEPTION
     Route: 065
  6. STELARA [Suspect]
     Active Substance: USTEKINUMAB
     Dosage: CYCLIC
     Route: 058
     Dates: start: 20180420, end: 20190901
  7. ENDOXAN [Concomitant]
     Active Substance: CYCLOPHOSPHAMIDE
     Route: 065
     Dates: start: 201910
  8. FLIXOVATE [Concomitant]
     Active Substance: FLUTICASONE PROPIONATE
     Route: 065
  9. PROTOPIC [Concomitant]
     Active Substance: TACROLIMUS
     Route: 065
  10. DAIVOBET [Concomitant]
     Active Substance: BETAMETHASONE DIPROPIONATE\CALCIPOTRIENE
     Route: 065
     Dates: start: 20141007
  11. KETODERM [Concomitant]
     Route: 065
     Dates: start: 20160726
  12. AMYCOR [Concomitant]
     Active Substance: BIFONAZOLE
     Route: 065
     Dates: start: 20141007
  13. METHOTREXATE (TRADE NAME UNKNOWN) [Suspect]
     Active Substance: METHOTREXATE
     Indication: PSORIASIS
     Route: 048
     Dates: start: 20140408, end: 20170721

REACTIONS (2)
  - Invasive ductal breast carcinoma [Not Recovered/Not Resolved]
  - Fatigue [Not Recovered/Not Resolved]

NARRATIVE: CASE EVENT DATE: 201711
